FAERS Safety Report 14037958 (Version 10)
Quarter: 2020Q4

REPORT INFORMATION
  Report Type: Other
  Country: CA (occurrence: CA)
  Receive Date: 20171004
  Receipt Date: 20201030
  Transmission Date: 20210113
  Serious: Yes (Death, Hospitalization, Other)
  Sender: FDA-Public Use
  Company Number: CA-APOTEX-2017AP019037

PATIENT
  Age: 31 Year
  Sex: Female

DRUGS (42)
  1. DIAZEPAM. [Suspect]
     Active Substance: DIAZEPAM
     Indication: STATUS EPILEPTICUS
     Dosage: 10 MG, UNK
     Route: 065
  2. METOCLOPRAMIDE. [Suspect]
     Active Substance: METOCLOPRAMIDE
     Indication: PROPHYLAXIS
  3. SODIUM CITRATE. [Suspect]
     Active Substance: SODIUM CITRATE
     Indication: PROPHYLAXIS
     Dosage: 30 ML, UNK
     Route: 048
  4. SUCCINYLCHOLINE CHLORIDE. [Suspect]
     Active Substance: SUCCINYLCHOLINE CHLORIDE
     Indication: ENDOTRACHEAL INTUBATION
     Dosage: 100 MG, UNK
     Route: 042
  5. THIOPENTAL [Suspect]
     Active Substance: THIOPENTAL
     Indication: FOETAL EXPOSURE DURING PREGNANCY
     Dosage: 250 MG, UNK
     Route: 042
  6. DOPAMINE [Suspect]
     Active Substance: DOPAMINE HYDROCHLORIDE
     Indication: HYPOTENSION
     Dosage: 4-10 MCG/KG/MIN, UNKNOWN
     Route: 065
  7. MIDAZOLAM. [Suspect]
     Active Substance: MIDAZOLAM
     Indication: STATUS EPILEPTICUS
     Dosage: 3 MG, UNK
     Route: 065
  8. PHENYTOIN. [Suspect]
     Active Substance: PHENYTOIN
     Indication: STATUS EPILEPTICUS
     Dosage: 1 G, UNK
     Route: 065
  9. PHENYTOIN. [Suspect]
     Active Substance: PHENYTOIN
     Indication: SEIZURE
  10. PHENYTOIN. [Suspect]
     Active Substance: PHENYTOIN
     Indication: FOETAL EXPOSURE DURING PREGNANCY
  11. SUCCINYLCHOLINE CHLORIDE. [Suspect]
     Active Substance: SUCCINYLCHOLINE CHLORIDE
     Dosage: 100 MILLIGRAM
     Route: 065
  12. LORAZEPAM. [Suspect]
     Active Substance: LORAZEPAM
     Indication: STATUS EPILEPTICUS
     Dosage: 2 MG, UNK
     Route: 065
  13. MAGNESIUM SULFATE. [Suspect]
     Active Substance: MAGNESIUM SULFATE
     Indication: FOETAL EXPOSURE DURING PREGNANCY
  14. THIOPENTAL [Suspect]
     Active Substance: THIOPENTAL
     Dosage: 250 MG, UNK
     Route: 042
  15. THIOPENTAL [Suspect]
     Active Substance: THIOPENTAL
     Dosage: 300 MG, Q.H.
     Route: 042
  16. DIAZEPAM. [Suspect]
     Active Substance: DIAZEPAM
     Indication: SEIZURE
     Dosage: UNK
     Route: 065
  17. DEXTROSE. [Suspect]
     Active Substance: DEXTROSE
     Indication: PRODUCT USED FOR UNKNOWN INDICATION
     Dosage: 50 ML, UNK
     Route: 042
  18. DEXTROSE. [Suspect]
     Active Substance: DEXTROSE
     Indication: FOETAL EXPOSURE DURING PREGNANCY
  19. PROPOFOL. [Suspect]
     Active Substance: PROPOFOL
     Indication: STATUS EPILEPTICUS
     Dosage: 200 MG, Q.H.
     Route: 042
  20. SODIUM CITRATE. [Suspect]
     Active Substance: SODIUM CITRATE
     Indication: FOETAL EXPOSURE DURING PREGNANCY
  21. SUCCINYLCHOLINE                    /00057701/ [Suspect]
     Active Substance: SUCCINYLCHOLINE
     Indication: ENDOTRACHEAL INTUBATION
     Dosage: 100 MG, UNK
     Route: 042
  22. DIPHENYLHYDANTOIN [Suspect]
     Active Substance: PHENYTOIN
     Indication: SEIZURE
     Dosage: 1 G, UNK
     Route: 016
  23. PHENYLEPHRINE [Suspect]
     Active Substance: PHENYLEPHRINE HYDROCHLORIDE
     Indication: HYPOTENSION
     Dosage: 7-1.5 MCG/KG/MIN, UNKNOWN
     Route: 065
  24. ATIVAN [Suspect]
     Active Substance: LORAZEPAM
     Indication: BIPOLAR DISORDER
     Dosage: 2 MILLIGRAM
     Route: 065
  25. ATIVAN [Suspect]
     Active Substance: LORAZEPAM
     Indication: STATUS EPILEPTICUS
  26. THIOPENTAL [Suspect]
     Active Substance: THIOPENTAL
     Indication: STATUS EPILEPTICUS
     Dosage: 300 MG, Q.H.
     Route: 042
  27. THIOPENTAL [Suspect]
     Active Substance: THIOPENTAL
     Indication: ENDOTRACHEAL INTUBATION
     Dosage: 100 MG, UNK
     Route: 042
  28. CALCIUM CHLORIDE. [Suspect]
     Active Substance: CALCIUM CHLORIDE
     Indication: PRODUCT USED FOR UNKNOWN INDICATION
     Dosage: 1 G, UNK
     Route: 065
  29. APO-LORAZEPAM [Suspect]
     Active Substance: LORAZEPAM
     Indication: STATUS EPILEPTICUS
     Dosage: 2 MG, UNK
     Route: 065
  30. METOCLOPRAMIDE. [Suspect]
     Active Substance: METOCLOPRAMIDE
     Indication: PROPHYLAXIS
     Dosage: 10 MG, UNK
     Route: 042
  31. PROPOFOL. [Suspect]
     Active Substance: PROPOFOL
     Indication: SEIZURE
     Dosage: UNK
     Route: 042
  32. SUCCINYLCHOLINE                    /00057701/ [Suspect]
     Active Substance: SUCCINYLCHOLINE
     Indication: FOETAL EXPOSURE DURING PREGNANCY
     Dosage: 100 MILLIGRAM
     Route: 065
  33. MIDAZOLAM. [Suspect]
     Active Substance: MIDAZOLAM
     Indication: SEIZURE
  34. PAROXETINE. [Suspect]
     Active Substance: PAROXETINE
     Indication: BIPOLAR DISORDER
     Dosage: UNK UNK, UNKNOWN
     Route: 065
  35. PAROXETINE. [Suspect]
     Active Substance: PAROXETINE
     Indication: FOETAL EXPOSURE DURING PREGNANCY
  36. ATIVAN [Suspect]
     Active Substance: LORAZEPAM
     Indication: FOETAL EXPOSURE DURING PREGNANCY
  37. MAGNESIUM SULFATE. [Suspect]
     Active Substance: MAGNESIUM SULFATE
     Indication: STATUS EPILEPTICUS
     Dosage: 2 G, UNK
     Route: 065
  38. PROPOFOL. [Suspect]
     Active Substance: PROPOFOL
     Dosage: UNK
     Route: 065
  39. THIOPENTAL [Suspect]
     Active Substance: THIOPENTAL
     Dosage: UNK UNK, UNKNOWN
     Route: 042
  40. MIDAZOLAM. [Suspect]
     Active Substance: MIDAZOLAM
     Indication: FOETAL EXPOSURE DURING PREGNANCY
  41. METOCLOPRAMIDE. [Suspect]
     Active Substance: METOCLOPRAMIDE
     Indication: FOETAL EXPOSURE DURING PREGNANCY
  42. THIOPENTAL [Suspect]
     Active Substance: THIOPENTAL
     Indication: SEIZURE
     Dosage: 100 MG, UNK
     Route: 042

REACTIONS (26)
  - Foetal death [Fatal]
  - PO2 increased [Fatal]
  - Renal impairment [Fatal]
  - Hypotension [Fatal]
  - Seizure [Fatal]
  - Status epilepticus [Fatal]
  - Renal impairment [Unknown]
  - Drug ineffective [Fatal]
  - Left ventricular dysfunction [Fatal]
  - Exposure during pregnancy [Not Recovered/Not Resolved]
  - Blood magnesium decreased [Fatal]
  - Loss of consciousness [Fatal]
  - PCO2 increased [Fatal]
  - Electroencephalogram abnormal [Fatal]
  - PCO2 increased [Unknown]
  - Blood calcium decreased [Fatal]
  - Diabetes insipidus [Fatal]
  - Blood bicarbonate decreased [Fatal]
  - Blood pH decreased [Fatal]
  - Exposure during pregnancy [Unknown]
  - Oxygen saturation abnormal [Fatal]
  - Renal ischaemia [Fatal]
  - Left ventricular dysfunction [Unknown]
  - Maternal exposure during pregnancy [Fatal]
  - Clonus [Recovered/Resolved]
  - Encephalopathy [Fatal]
